FAERS Safety Report 18131268 (Version 1)
Quarter: 2020Q3

REPORT INFORMATION
  Report Type: Spontaneous
  Country: US (occurrence: US)
  Receive Date: 20200810
  Receipt Date: 20200810
  Transmission Date: 20201103
  Serious: Yes (Other)
  Sender: FDA-Public Use
  Company Number: US-BAUSCH-BL-2020-022014

PATIENT
  Age: 39 Year
  Sex: Female

DRUGS (3)
  1. METOPROLOL. [Suspect]
     Active Substance: METOPROLOL
     Indication: MYOCARDIAL INFARCTION
     Route: 065
  2. CARVEDILOL. [Suspect]
     Active Substance: CARVEDILOL
     Indication: SINUS TACHYCARDIA
     Route: 065
  3. DEXAMETHASONE. [Suspect]
     Active Substance: DEXAMETHASONE
     Indication: PHARYNGITIS STREPTOCOCCAL
     Route: 065

REACTIONS (5)
  - Cardiogenic shock [Recovered/Resolved]
  - Disease progression [Recovered/Resolved]
  - Phaeochromocytoma crisis [Recovered/Resolved]
  - Circulatory collapse [Recovered/Resolved]
  - Pulmonary oedema [Recovered/Resolved]
